FAERS Safety Report 21993198 (Version 5)
Quarter: 2023Q2

REPORT INFORMATION
  Report Type: Spontaneous
  Country: JP (occurrence: JP)
  Receive Date: 20230215
  Receipt Date: 20230522
  Transmission Date: 20230721
  Serious: Yes (Other)
  Sender: FDA-Public Use
  Company Number: JP-MSD-M2023-05460

PATIENT
  Age: 78 Year
  Sex: Female
  Weight: 38 kg

DRUGS (4)
  1. KEYTRUDA [Suspect]
     Active Substance: PEMBROLIZUMAB
     Indication: Triple negative breast cancer
     Dosage: 200 MILLIGRAM, Q3W
     Route: 041
     Dates: start: 20221003, end: 202305
  2. PACLITAXEL [Suspect]
     Active Substance: PACLITAXEL
     Indication: Triple negative breast cancer
     Dosage: 90 MILLIGRAM/SQ. METER, TIW
     Route: 041
     Dates: start: 20221213, end: 202305
  3. GEMCITABINE HYDROCHLORIDE [Concomitant]
     Active Substance: GEMCITABINE HYDROCHLORIDE
     Indication: Triple negative breast cancer
     Dosage: 1000 MILLIGRAM/SQ. METER, ON DAY 1 AND DAY 8 OF EACH CYCLE (ONE CYCLE OF 21 DAYS)
     Route: 041
     Dates: start: 20221003, end: 20221212
  4. CARBOPLATIN [Concomitant]
     Active Substance: CARBOPLATIN
     Indication: Triple negative breast cancer
     Dosage: AUC2, ADMINISTERED ON DAY 1 AND DAY 8 OF EACH CYCLE (ONE CYCLE OF 21 DAYS)
     Route: 041
     Dates: start: 20221003, end: 20221212

REACTIONS (4)
  - Malignant neoplasm progression [Unknown]
  - Tumour necrosis [Recovering/Resolving]
  - Skin necrosis [Recovering/Resolving]
  - Anaemia [Unknown]

NARRATIVE: CASE EVENT DATE: 20230101
